FAERS Safety Report 23669344 (Version 1)
Quarter: 2024Q1

REPORT INFORMATION
  Report Type: Spontaneous
  Country: US (occurrence: None)
  Receive Date: 20240325
  Receipt Date: 20240325
  Transmission Date: 20240410
  Serious: Yes (Hospitalization)
  Sender: FDA-Public Use
  Company Number: None

PATIENT
  Sex: Female

DRUGS (3)
  1. FORTEO [Suspect]
     Active Substance: TERIPARATIDE
     Indication: Senile osteoporosis
     Dosage: OTHER STRENGTH : 600MCG/2.4ML;?FREQUENCY : DAILY;?
     Route: 058
     Dates: start: 20230218
  2. JANUVIA [Concomitant]
  3. TERIPARATIDE [Concomitant]
     Active Substance: TERIPARATIDE

REACTIONS (5)
  - Spinal operation [None]
  - Pneumonia [None]
  - Respiratory syncytial virus infection [None]
  - Herpes zoster [None]
  - Therapy interrupted [None]
